FAERS Safety Report 9323507 (Version 1)
Quarter: 2013Q2

REPORT INFORMATION
  Report Type: Spontaneous
  Country: GB (occurrence: GB)
  Receive Date: 20130603
  Receipt Date: 20130603
  Transmission Date: 20140414
  Serious: Yes (Life-Threatening, Hospitalization)
  Sender: FDA-Public Use
  Company Number: GB-JNJFOC-20130516202

PATIENT
  Age: 61 Year
  Sex: Male
  Weight: 60 kg

DRUGS (6)
  1. PALIPERIDONE PALMITATE [Suspect]
     Indication: BIPOLAR DISORDER
     Route: 030
     Dates: start: 20130301, end: 20130502
  2. LISINOPRIL [Concomitant]
     Route: 065
  3. ORPHENADRINE [Concomitant]
     Route: 065
  4. SIMVASTATIN [Concomitant]
     Route: 065
  5. SODIUM VALPROATE [Concomitant]
     Route: 065
  6. CALCIUM AND ERGOCALCIFEROL [Concomitant]
     Route: 065

REACTIONS (2)
  - Encephalopathy [Recovering/Resolving]
  - Coma scale abnormal [Recovering/Resolving]
